FAERS Safety Report 13375173 (Version 1)
Quarter: 2017Q1

REPORT INFORMATION
  Report Type: Spontaneous
  Country: US (occurrence: US)
  Receive Date: 20170327
  Receipt Date: 20170327
  Transmission Date: 20170429
  Serious: No
  Sender: FDA-Public Use
  Company Number: US-ASTRAZENECA-2017SE28981

PATIENT
  Sex: Male
  Weight: 85.7 kg

DRUGS (1)
  1. FARXIGA [Suspect]
     Active Substance: DAPAGLIFLOZIN PROPANEDIOL
     Indication: GLUCOSE TOLERANCE IMPAIRED
     Route: 048
     Dates: start: 2015, end: 2015

REACTIONS (3)
  - Abdominal pain upper [Unknown]
  - Off label use [Recovered/Resolved]
  - Product use issue [Recovered/Resolved]
